FAERS Safety Report 6910696-8 (Version None)
Quarter: 2010Q3

REPORT INFORMATION
  Report Type: 
  Country: None (occurrence: None)
  Receive Date: 20100806
  Receipt Date: 20100727
  Transmission Date: 20110219
  Serious: Yes (Hospitalization, Other)
  Sender: FDA-Public Use
  Company Number: JP-PFIZER INC-2010081127

PATIENT
  Age: 51 Year
  Sex: Male

DRUGS (2)
  1. ZOLOFT [Suspect]
     Indication: DEPRESSION
     Dosage: 25 MG, UNK
     Route: 048
     Dates: start: 20100608, end: 20100619
  2. TEGRETOL [Suspect]
     Dosage: UNK
     Route: 048

REACTIONS (1)
  - DRUG ERUPTION [None]
